FAERS Safety Report 4312417-4 (Version None)
Quarter: 2004Q1

REPORT INFORMATION
  Report Type: 
  Country: None (occurrence: None)
  Receive Date: 20040305
  Receipt Date: 20040305
  Transmission Date: 20041129
  Serious: Yes (Hospitalization)
  Sender: FDA-Public Use
  Company Number: None

PATIENT
  Age: 47 Year
  Sex: Female

DRUGS (1)
  1. LOVASTATIN [Suspect]
     Dosage: 2 TABS Q DAY
     Dates: end: 20040131

REACTIONS (3)
  - ASTHENIA [None]
  - FALL [None]
  - MYALGIA [None]
